FAERS Safety Report 10456238 (Version 3)
Quarter: 2014Q4

REPORT INFORMATION
  Report Type: Spontaneous
  Country: US (occurrence: None)
  Receive Date: 20140912
  Receipt Date: 20141112
  Transmission Date: 20150528
  Serious: Yes (Other)
  Sender: FDA-Public Use
  Company Number: 2014090002

PATIENT
  Age: 54 Year
  Sex: Female
  Weight: 70.31 kg

DRUGS (7)
  1. PREVACID [Concomitant]
     Active Substance: LANSOPRAZOLE
  2. ATIVAN [Concomitant]
     Active Substance: LORAZEPAM
  3. ALBUTEROL  (ALBUTEROL) [Concomitant]
     Active Substance: ALBUTEROL
  4. AZELASTINE HYDROCHLORIDE. [Suspect]
     Active Substance: AZELASTINE HYDROCHLORIDE
     Indication: ASTHMA
     Dosage: IN
     Dates: start: 201405, end: 20140830
  5. PULMICORT TURBUHALER [Concomitant]
     Active Substance: BUDESONIDE
  6. MICARDIS [Concomitant]
     Active Substance: TELMISARTAN
  7. SINGULAIR (MONTELUKAST SODIUM [Concomitant]

REACTIONS (7)
  - Hypoaesthesia teeth [None]
  - Deafness unilateral [None]
  - Pain in jaw [None]
  - Ear pain [None]
  - Toothache [None]
  - Migraine [None]
  - Nausea [None]

NARRATIVE: CASE EVENT DATE: 201405
